FAERS Safety Report 13276938 (Version 1)
Quarter: 2017Q1

REPORT INFORMATION
  Report Type: Spontaneous
  Country: US (occurrence: US)
  Receive Date: 20170228
  Receipt Date: 20170228
  Transmission Date: 20170428
  Serious: Yes (Hospitalization)
  Sender: FDA-Public Use
  Company Number: None

PATIENT

DRUGS (2)
  1. METHYLPREDNISONE 60 MG IV [Suspect]
     Active Substance: METHYLPREDNISOLONE
  2. PREDNISONE 40 MG [Suspect]
     Active Substance: PREDNISONE

REACTIONS (3)
  - Clostridium test positive [None]
  - Pyrexia [None]
  - Dyspnoea [None]

NARRATIVE: CASE EVENT DATE: 20150203
